FAERS Safety Report 11878891 (Version 1)
Quarter: 2015Q4

REPORT INFORMATION
  Report Type: Report from Study
  Country: DE (occurrence: DE)
  Receive Date: 20151230
  Receipt Date: 20151230
  Transmission Date: 20160305
  Serious: Yes (Other)
  Sender: FDA-Public Use
  Company Number: DE-JNJFOC-20151223851

PATIENT
  Age: 33 Year
  Sex: Female

DRUGS (1)
  1. XARELTO [Suspect]
     Active Substance: RIVAROXABAN
     Indication: PRODUCT USED FOR UNKNOWN INDICATION
     Route: 048

REACTIONS (7)
  - Back pain [Unknown]
  - Heart rate increased [Unknown]
  - Fatigue [Unknown]
  - Ventricular extrasystoles [Unknown]
  - Angina pectoris [Unknown]
  - Palpitations [Unknown]
  - Cough [Unknown]
